FAERS Safety Report 4368118-X (Version None)
Quarter: 2004Q2

REPORT INFORMATION
  Report Type: 
  Country: None (occurrence: None)
  Receive Date: 20040602
  Receipt Date: 20040518
  Transmission Date: 20050107
  Serious: Yes (Other)
  Sender: FDA-Public Use
  Company Number: US-MERCK-0405USA01344

PATIENT
  Age: 92 Year
  Sex: Female

DRUGS (1)
  1. TRUSOPT [Suspect]
     Route: 047

REACTIONS (1)
  - APLASTIC ANAEMIA [None]
